FAERS Safety Report 18779852 (Version 4)
Quarter: 2021Q1

REPORT INFORMATION
  Report Type: Spontaneous
  Country: JP (occurrence: JP)
  Receive Date: 20210125
  Receipt Date: 20210311
  Transmission Date: 20210419
  Serious: Yes (Other)
  Sender: FDA-Public Use
  Company Number: JP-ROCHE-2756421

PATIENT
  Age: 71 Year
  Sex: Male
  Weight: 69 kg

DRUGS (10)
  1. ABRAXANE [Suspect]
     Active Substance: PACLITAXEL
     Indication: LUNG ADENOCARCINOMA
     Dosage: RECENT DOSE ON 06/JAN/2021
     Route: 041
     Dates: start: 20210106
  2. GRANISETRON [Concomitant]
     Active Substance: GRANISETRON
     Dosage: DOSAGE IS UNCERTAIN.
     Route: 041
     Dates: start: 20210106, end: 20210106
  3. TECENTRIQ [Suspect]
     Active Substance: ATEZOLIZUMAB
     Indication: LUNG ADENOCARCINOMA
     Dosage: RECENT DOSE ON 06/JAN/2021
     Route: 041
     Dates: start: 20210106
  4. CLARITHROMYCIN. [Concomitant]
     Active Substance: CLARITHROMYCIN
     Dosage: DOSAGE IS UNCERTAIN.
     Route: 048
     Dates: start: 20201214, end: 20210125
  5. ALLERMIST [Concomitant]
     Active Substance: FLUTICASONE FUROATE
     Dosage: DOSAGE IS UNCERTAIN.
     Route: 045
     Dates: start: 20201214, end: 20210125
  6. APREPITANT. [Concomitant]
     Active Substance: APREPITANT
     Dosage: DOSAGE IS UNCERTAIN.
     Route: 048
     Dates: start: 20210106, end: 20210106
  7. SODIUM CHLORIDE. [Concomitant]
     Active Substance: SODIUM CHLORIDE
     Dosage: FOR NOSE GARGLE
     Route: 045
     Dates: start: 20201214, end: 20210125
  8. CARBOPLATIN. [Concomitant]
     Active Substance: CARBOPLATIN
     Indication: LUNG ADENOCARCINOMA
     Dosage: DOSAGE IS UNCERTAIN.
     Route: 041
     Dates: start: 20210106, end: 20210106
  9. SODIUM BICARBONATE. [Concomitant]
     Active Substance: SODIUM BICARBONATE
     Dosage: FOR NOSE GARGLE
     Route: 045
     Dates: start: 20201214, end: 20210125
  10. DECADRON [Concomitant]
     Active Substance: DEXAMETHASONE
     Dosage: DOSAGE IS UNCERTAIN.
     Route: 065
     Dates: start: 20210106, end: 20210106

REACTIONS (11)
  - Seizure [Recovering/Resolving]
  - Decreased appetite [Recovering/Resolving]
  - Thyroxine free decreased [Unknown]
  - Pyrexia [Recovering/Resolving]
  - Liver disorder [Unknown]
  - General physical health deterioration [Unknown]
  - Blood thyroid stimulating hormone decreased [Unknown]
  - Cerebral infarction [Unknown]
  - Rash [Unknown]
  - Renal impairment [Unknown]
  - Depressed level of consciousness [Recovering/Resolving]

NARRATIVE: CASE EVENT DATE: 20210110
